FAERS Safety Report 16390644 (Version 2)
Quarter: 2019Q3

REPORT INFORMATION
  Report Type: Report from Study
  Country: US (occurrence: US)
  Receive Date: 20190604
  Receipt Date: 20190701
  Transmission Date: 20191004
  Serious: Yes (Other)
  Sender: FDA-Public Use
  Company Number: US-ACTELION-A-NJ2018-178848

PATIENT
  Age: 55 Year
  Sex: Female
  Weight: 95.24 kg

DRUGS (9)
  1. UPTRAVI [Suspect]
     Active Substance: SELEXIPAG
     Dosage: UNK, QD
     Route: 048
  2. UPTRAVI [Suspect]
     Active Substance: SELEXIPAG
     Dosage: 1600 MCG, QD
     Route: 048
  3. UPTRAVI [Suspect]
     Active Substance: SELEXIPAG
     Dosage: 1600 MCG, QD
     Route: 048
     Dates: start: 201712
  4. UPTRAVI [Suspect]
     Active Substance: SELEXIPAG
     Indication: PULMONARY ARTERIAL HYPERTENSION
     Dosage: 800 MCG, BID
     Route: 048
     Dates: end: 201903
  5. UPTRAVI [Suspect]
     Active Substance: SELEXIPAG
     Dosage: 200 MCG, QD
     Route: 048
  6. UPTRAVI [Suspect]
     Active Substance: SELEXIPAG
     Dosage: 1600 MCG, BID
     Route: 048
  7. OXYGEN. [Suspect]
     Active Substance: OXYGEN
     Indication: PRODUCT USED FOR UNKNOWN INDICATION
     Dosage: UNK, PRN
     Route: 045
  8. LETAIRIS [Suspect]
     Active Substance: AMBRISENTAN
     Indication: PULMONARY ARTERIAL HYPERTENSION
     Dosage: 10 MG, QD
     Route: 048
     Dates: start: 20160205
  9. SILDENAFIL CITRATE. [Concomitant]
     Active Substance: SILDENAFIL CITRATE

REACTIONS (44)
  - Scleroderma [Not Recovered/Not Resolved]
  - Sleep disorder [Unknown]
  - Chest pain [Unknown]
  - Abdominal pain upper [Unknown]
  - Hepatic steatosis [Unknown]
  - Dyspepsia [Not Recovered/Not Resolved]
  - Palpitations [Unknown]
  - Oedema [Unknown]
  - Thyroid mass [Unknown]
  - Pain [Unknown]
  - Dyspnoea paroxysmal nocturnal [Unknown]
  - Nasal congestion [Unknown]
  - Back pain [Unknown]
  - Paranasal sinus discomfort [Not Recovered/Not Resolved]
  - Stress [Not Recovered/Not Resolved]
  - Pelvic pain [Not Recovered/Not Resolved]
  - Fluid retention [Unknown]
  - Increased appetite [Unknown]
  - Lymphadenopathy [Unknown]
  - Epistaxis [Unknown]
  - Pollakiuria [Not Recovered/Not Resolved]
  - Cardiac failure congestive [Unknown]
  - Oxygen saturation decreased [Unknown]
  - Eating disorder [Unknown]
  - Cough [Unknown]
  - Hypokalaemia [Not Recovered/Not Resolved]
  - Joint swelling [Unknown]
  - Nasal dryness [Unknown]
  - Oedema peripheral [Unknown]
  - Noninfective gingivitis [Not Recovered/Not Resolved]
  - Feeling cold [Unknown]
  - Arthralgia [Unknown]
  - Anal incontinence [Unknown]
  - Flatulence [Unknown]
  - Fatigue [Not Recovered/Not Resolved]
  - Weight increased [Unknown]
  - Chronic kidney disease [Unknown]
  - Myalgia [Not Recovered/Not Resolved]
  - Therapy non-responder [Unknown]
  - Blood urea increased [Unknown]
  - Dyspnoea [Unknown]
  - Pain in jaw [Not Recovered/Not Resolved]
  - Dizziness [Unknown]
  - Anaemia [Not Recovered/Not Resolved]

NARRATIVE: CASE EVENT DATE: 2018
